FAERS Safety Report 10970419 (Version 1)
Quarter: 2015Q1

REPORT INFORMATION
  Report Type: Spontaneous
  Country: US (occurrence: None)
  Receive Date: 20150330
  Receipt Date: 20150330
  Transmission Date: 20150721
  Serious: No
  Sender: FDA-Public Use
  Company Number: None

PATIENT
  Age: 88 Year
  Sex: Female
  Weight: 58.97 kg

DRUGS (9)
  1. PLAVIX [Concomitant]
     Active Substance: CLOPIDOGREL BISULFATE
  2. DULCOLAX [Concomitant]
     Active Substance: BISACODYL OR DOCUSATE SODIUM
  3. MYRBETRIQ [Suspect]
     Active Substance: MIRABEGRON
     Indication: HYPERTONIC BLADDER
     Dosage: EXTENDED ???? TABLETS 25MG, ONE TABLET, ONCE A DAY, BY MOUTH
     Route: 048
     Dates: start: 20140905, end: 20140910
  4. DEXILANT [Concomitant]
     Active Substance: DEXLANSOPRAZOLE
  5. DIOVAN [Concomitant]
     Active Substance: VALSARTAN
  6. D3 [Concomitant]
     Active Substance: 25-HYDROXYCHOLECALCIFEROL, 5-TRANS-
  7. DIGOXIN. [Concomitant]
     Active Substance: DIGOXIN
  8. SYSTANE EYEDROPS [Concomitant]
     Active Substance: POLYETHYLENE GLYCOL 400\PROPYLENE GLYCOL
  9. METOPROLOL [Concomitant]
     Active Substance: METOPROLOL

REACTIONS (3)
  - Loss of consciousness [None]
  - Feeling abnormal [None]
  - Atrial fibrillation [None]

NARRATIVE: CASE EVENT DATE: 20140910
